FAERS Safety Report 16140242 (Version 2)
Quarter: 2019Q2

REPORT INFORMATION
  Report Type: Spontaneous
  Country: UA (occurrence: UA)
  Receive Date: 20190401
  Receipt Date: 20190404
  Transmission Date: 20190711
  Serious: Yes (Life-Threatening)
  Sender: FDA-Public Use
  Company Number: UA-SA-2019SA089183

PATIENT
  Age: 53 Year
  Sex: Male

DRUGS (12)
  1. CONTROLOC [Concomitant]
     Active Substance: PANTOPRAZOLE SODIUM
     Dosage: 20 MG, QD EVENING
     Route: 048
     Dates: start: 20181130
  2. CLEXANE [Concomitant]
     Active Substance: ENOXAPARIN SODIUM
     Dosage: 0.8 UNK, BID IM NEAR THE UMBILICUS FOR 5-7 DAYS
     Route: 030
     Dates: start: 20181130
  3. PLAVIX [Suspect]
     Active Substance: CLOPIDOGREL BISULFATE
     Indication: VASCULAR STENT THROMBOSIS
     Dosage: 75 MG, QD
     Route: 048
     Dates: start: 20181123, end: 20181130
  4. INTEGRILIN [Concomitant]
     Active Substance: EPTIFIBATIDE
     Dosage: 2 MCG/KG/MIN
     Dates: start: 20181130
  5. HEPARIN [Concomitant]
     Active Substance: HEPARIN SODIUM
     Dosage: UNK (8000 IU AND THEN 5000 IU EVERY 1 HOUR)
     Route: 042
     Dates: start: 20181130, end: 20181130
  6. BRILINTA [Concomitant]
     Active Substance: TICAGRELOR
     Dosage: 90 MG, BID AFTER THE MEAL
     Route: 048
     Dates: start: 20181130
  7. ASPIRIN CARDIO [Concomitant]
     Active Substance: ASPIRIN
     Dosage: 100 MG, QD
     Route: 048
     Dates: start: 20181130
  8. VISIPAQUE [Concomitant]
     Active Substance: IODIXANOL
     Indication: DIAGNOSTIC PROCEDURE
     Dosage: 320 MG
     Route: 042
     Dates: start: 20181130, end: 20181130
  9. NOVOCAIN [Concomitant]
     Active Substance: PROCAINE HYDROCHLORIDE
     Indication: ANAESTHESIA
     Dosage: 0.5 %
     Route: 042
     Dates: start: 20181130, end: 20181130
  10. DOBUTAMINE [Concomitant]
     Active Substance: DOBUTAMINE\DOBUTAMINE HYDROCHLORIDE
     Dosage: IV UNTIL THE STABILIZATION OF HEMODYNAMICS
     Route: 042
     Dates: start: 20181130
  11. PLAVIX [Suspect]
     Active Substance: CLOPIDOGREL BISULFATE
     Dosage: 600 UNK
     Route: 048
     Dates: start: 20181123, end: 20181130
  12. ROSUVASTATIN. [Concomitant]
     Active Substance: ROSUVASTATIN
     Dosage: 40 MG, QD AFTER MEAL
     Route: 048
     Dates: start: 20181130

REACTIONS (4)
  - Cardiac arrest [Recovered/Resolved]
  - Apallic syndrome [Not Recovered/Not Resolved]
  - Ventricular fibrillation [Recovered/Resolved]
  - Postresuscitation encephalopathy [Not Recovered/Not Resolved]

NARRATIVE: CASE EVENT DATE: 20181130
